FAERS Safety Report 18900966 (Version 3)
Quarter: 2021Q2

REPORT INFORMATION
  Report Type: Report from Study
  Country: US (occurrence: US)
  Receive Date: 20210217
  Receipt Date: 20210614
  Transmission Date: 20210717
  Serious: Yes (Hospitalization)
  Sender: FDA-Public Use
  Company Number: US-ROCHE-2769544

PATIENT
  Age: 71 Year
  Sex: Male
  Weight: 66.86 kg

DRUGS (4)
  1. VENETOCLAX. [Suspect]
     Active Substance: VENETOCLAX
     Dosage: LAST DOSE OF VENETOCLAX: 21/JUN/2020
     Route: 048
     Dates: start: 20200608, end: 20200624
  2. IBRUTINIB [Suspect]
     Active Substance: IBRUTINIB
     Indication: CHRONIC LYMPHOCYTIC LEUKAEMIA
     Dosage: ORAL ONCE A DAY FOR 15 CYCLES?MOST RECENT DOSE 5460 MG OF IBRUTINIB: 22/JUN/2020
     Route: 048
     Dates: start: 20200413
  3. VENETOCLAX. [Suspect]
     Active Substance: VENETOCLAX
     Indication: CHRONIC LYMPHOCYTIC LEUKAEMIA
     Dosage: 20 MG ORAL ONCE A DAY (DAYS 1?7 CYCLE 3), 50 MG ORAL ONCE A DAY (DAYS 8?14, CYCLE 3), 100 MG ORAL ON
     Route: 048
     Dates: start: 20200413
  4. OBINUTUZUMAB. [Suspect]
     Active Substance: OBINUTUZUMAB
     Indication: CHRONIC LYMPHOCYTIC LEUKAEMIA
     Dosage: 100 MG IV ON CYCLE 1 DAY 1, 900 MG IV ON CYCLE 1 DAY 2, 1000 MG IV ON CYCLE 1 DAY 8 + CYCLE 1 DAY 15
     Route: 042
     Dates: start: 20200413

REACTIONS (5)
  - Dyspnoea [Recovered/Resolved]
  - Atrial tachycardia [Recovered/Resolved]
  - Hypotension [Recovered/Resolved]
  - Pneumonia [Recovered/Resolved]
  - Chest pain [Unknown]

NARRATIVE: CASE EVENT DATE: 20200622
